FAERS Safety Report 6285538-7 (Version None)
Quarter: 2009Q3

REPORT INFORMATION
  Report Type: 
  Country: None (occurrence: None)
  Receive Date: 20090727
  Receipt Date: 20090717
  Transmission Date: 20100115
  Serious: Yes (Other)
  Sender: FDA-Public Use
  Company Number: US-ABBOTT-09P-163-0501840-00

PATIENT
  Sex: Male

DRUGS (28)
  1. DEPAKOTE [Suspect]
     Indication: DRUG USE FOR UNKNOWN INDICATION
     Dates: start: 20060512, end: 20081212
  2. CLOZAPINE [Suspect]
     Indication: DRUG USE FOR UNKNOWN INDICATION
     Route: 048
     Dates: start: 20081007, end: 20081015
  3. TRAZODONE [Suspect]
     Indication: DRUG USE FOR UNKNOWN INDICATION
     Dates: end: 20081104
  4. OLANZAPINE [Suspect]
     Indication: DRUG USE FOR UNKNOWN INDICATION
     Dates: start: 20061205, end: 20061212
  5. OLANZAPINE [Suspect]
     Dates: start: 20070109, end: 20070522
  6. OLANZAPINE [Suspect]
     Dates: start: 20070522, end: 20070717
  7. OLANZAPINE [Suspect]
     Dates: start: 20070717, end: 20080826
  8. OLANZAPINE [Suspect]
     Dates: start: 20080826, end: 20081016
  9. OLANZAPINE [Suspect]
     Dates: start: 20081016, end: 20081104
  10. OLANZAPINE [Suspect]
     Dates: start: 20081104, end: 20081118
  11. OLANZAPINE [Suspect]
     Dates: start: 20081118, end: 20081125
  12. OLANZAPINE [Suspect]
     Dates: start: 20081125, end: 20081202
  13. KEPPRA [Suspect]
     Indication: DRUG USE FOR UNKNOWN INDICATION
  14. LITHIUM CARBONATE [Concomitant]
     Indication: DRUG USE FOR UNKNOWN INDICATION
     Dosage: DAILY DOSE: 600 MILLIGRAMS
     Dates: start: 20081021, end: 20090204
  15. RESTORIL [Concomitant]
     Indication: DRUG USE FOR UNKNOWN INDICATION
     Dates: end: 20071030
  16. KEPPRA [Concomitant]
     Indication: DRUG USE FOR UNKNOWN INDICATION
     Dates: start: 20070327, end: 20070424
  17. HALDOL [Concomitant]
     Indication: DRUG USE FOR UNKNOWN INDICATION
     Dates: end: 20070109
  18. CELEXA [Concomitant]
     Indication: DRUG USE FOR UNKNOWN INDICATION
     Dates: start: 20070306, end: 20070911
  19. KLONOPIN [Concomitant]
     Indication: DRUG USE FOR UNKNOWN INDICATION
     Dates: start: 20080212, end: 20081216
  20. XANAX [Concomitant]
     Indication: DRUG USE FOR UNKNOWN INDICATION
     Dates: start: 20071030
  21. ARTANE [Concomitant]
     Indication: DRUG USE FOR UNKNOWN INDICATION
     Dates: start: 20081118, end: 20081230
  22. PROLIXIN [Concomitant]
     Indication: DRUG USE FOR UNKNOWN INDICATION
     Dates: start: 20081118, end: 20081230
  23. GABAPENTIN [Concomitant]
     Indication: DRUG USE FOR UNKNOWN INDICATION
     Dates: start: 20081202
  24. COGENTIN [Concomitant]
     Indication: DRUG USE FOR UNKNOWN INDICATION
     Dates: end: 20061219
  25. REMERON [Concomitant]
     Indication: DRUG USE FOR UNKNOWN INDICATION
     Dates: start: 20061205, end: 20061212
  26. MINIPRESS [Concomitant]
     Indication: DRUG USE FOR UNKNOWN INDICATION
     Dates: start: 20061219, end: 20070112
  27. PALIPERIDONE [Concomitant]
     Indication: DRUG USE FOR UNKNOWN INDICATION
     Dates: start: 20081104, end: 20081110
  28. LEVOTHYROXINE SODIUM [Concomitant]
     Indication: DRUG USE FOR UNKNOWN INDICATION
     Dates: start: 20081216

REACTIONS (9)
  - BLOOD CHOLESTEROL INCREASED [None]
  - BLOOD GLUCOSE INCREASED [None]
  - BLOOD TRIGLYCERIDES INCREASED [None]
  - GRANULOCYTOPENIA [None]
  - HAEMATOCRIT DECREASED [None]
  - HAEMOGLOBIN DECREASED [None]
  - LYMPHOCYTE COUNT INCREASED [None]
  - NEUTROPHIL COUNT DECREASED [None]
  - RED BLOOD CELL COUNT DECREASED [None]
